FAERS Safety Report 6296185-5 (Version None)
Quarter: 2009Q3

REPORT INFORMATION
  Report Type: 
  Country: None (occurrence: None)
  Receive Date: 20090804
  Receipt Date: 20090727
  Transmission Date: 20100115
  Serious: Yes (Other)
  Sender: FDA-Public Use
  Company Number: US-JNJFOC-20090708717

PATIENT
  Age: 88 Year
  Sex: Female
  Weight: 63.5 kg

DRUGS (6)
  1. IMODIUM MULTI-SYMPTOM RELIEF [Suspect]
     Route: 048
  2. IMODIUM MULTI-SYMPTOM RELIEF [Suspect]
     Indication: DIARRHOEA
     Route: 048
  3. SERTRALINE [Concomitant]
     Indication: DEPRESSION
  4. IMIPRAMINE [Concomitant]
     Indication: DEPRESSION
  5. BENICAR [Concomitant]
     Indication: HYPERTENSION
  6. STRESS TABS [Concomitant]
     Indication: NUTRITIONAL SUPPORT

REACTIONS (2)
  - DRUG INEFFECTIVE [None]
  - FALL [None]
